FAERS Safety Report 7686723-X (Version None)
Quarter: 2011Q3

REPORT INFORMATION
  Report Type: 
  Country: None (occurrence: None)
  Receive Date: 20110816
  Receipt Date: 20110502
  Transmission Date: 20111222
  Serious: No
  Sender: FDA-Public Use
  Company Number: US-MYLANLABS-2011S1009116

PATIENT

DRUGS (2)
  1. LISINOPRIL AND HYDROCHLOROTHIAZIDE [Suspect]
  2. LISINOPRIL AND HYDROCHLOROTHIAZIDE [Suspect]

REACTIONS (15)
  - HYPERHIDROSIS [None]
  - HYPOAESTHESIA ORAL [None]
  - BURNING SENSATION [None]
  - PARAESTHESIA [None]
  - NAUSEA [None]
  - GINGIVAL BLEEDING [None]
  - COUGH [None]
  - VISION BLURRED [None]
  - EAR DISCOMFORT [None]
  - PAIN IN EXTREMITY [None]
  - PRURITUS [None]
  - BREAST SWELLING [None]
  - DIZZINESS [None]
  - MUSCULOSKELETAL PAIN [None]
  - HYPOAESTHESIA [None]
